FAERS Safety Report 14620912 (Version 2)
Quarter: 2018Q2

REPORT INFORMATION
  Report Type: Report from Study
  Country: US (occurrence: US)
  Receive Date: 20180309
  Receipt Date: 20180429
  Transmission Date: 20180711
  Serious: Yes (Other)
  Sender: FDA-Public Use
  Company Number: US-BIOMARINAP-US-2018-117351

PATIENT
  Age: 9 Year
  Sex: Female

DRUGS (1)
  1. NAGLAZYME [Suspect]
     Active Substance: GALSULFASE
     Indication: MUCOPOLYSACCHARIDOSIS VI
     Dosage: 1 MG/KG, QW
     Route: 042
     Dates: start: 20120131

REACTIONS (1)
  - Cervical spinal stenosis [Not Recovered/Not Resolved]

NARRATIVE: CASE EVENT DATE: 20161121
